FAERS Safety Report 25951296 (Version 1)
Quarter: 2025Q4

REPORT INFORMATION
  Report Type: Spontaneous
  Country: CN (occurrence: CN)
  Receive Date: 20251023
  Receipt Date: 20251023
  Transmission Date: 20260118
  Serious: Yes (Hospitalization, Other)
  Sender: STRIDES
  Company Number: CN-STRIDES ARCOLAB LIMITED-2025SP013133

PATIENT
  Age: 41 Year
  Sex: Female

DRUGS (7)
  1. MINOCYCLINE [Suspect]
     Active Substance: MINOCYCLINE HYDROCHLORIDE
     Indication: Mycobacterial infection
     Dosage: 100 MILLIGRAM, BID
     Route: 048
     Dates: start: 2023, end: 2023
  2. AMIKACIN [Concomitant]
     Active Substance: AMIKACIN
     Indication: Mycobacterial infection
     Dosage: 600 MILLIGRAM, QD
     Route: 065
     Dates: start: 20230629
  3. AMIKACIN [Concomitant]
     Active Substance: AMIKACIN
     Dosage: UNK, DOSE DECREASED
     Route: 065
     Dates: start: 202307
  4. LINEZOLID [Concomitant]
     Active Substance: LINEZOLID
     Indication: Mycobacterial infection
     Dosage: UNK
     Route: 048
     Dates: start: 2023
  5. LINEZOLID [Concomitant]
     Active Substance: LINEZOLID
     Dosage: 300 MILLIGRAM, BID
     Route: 048
     Dates: start: 202307
  6. VITAMIN B6 [Concomitant]
     Active Substance: PYRIDOXINE HYDROCHLORIDE
     Indication: Vitamin supplementation
     Dosage: 100 MILLIGRAM, QD
     Route: 042
     Dates: start: 202307
  7. IMIPENEM [Concomitant]
     Active Substance: IMIPENEM
     Indication: Mycobacterial infection
     Dosage: 1 GRAM, BID
     Route: 065
     Dates: start: 20230629

REACTIONS (1)
  - Ototoxicity [Recovering/Resolving]

NARRATIVE: CASE EVENT DATE: 20230101
